FAERS Safety Report 20629729 (Version 2)
Quarter: 2022Q2

REPORT INFORMATION
  Report Type: Report from Study
  Country: IL (occurrence: IL)
  Receive Date: 20220323
  Receipt Date: 20220401
  Transmission Date: 20220720
  Serious: Yes (Death)
  Sender: FDA-Public Use
  Company Number: IL-ABBVIE-22K-082-4324182-00

PATIENT
  Sex: Female

DRUGS (2)
  1. CARBIDOPA\LEVODOPA [Suspect]
     Active Substance: CARBIDOPA\LEVODOPA
     Indication: Parkinson^s disease
     Dosage: 20 MG/ML 5 MG/ML GEL
     Route: 050
     Dates: start: 20190618
  2. CARBIDOPA\LEVODOPA [Suspect]
     Active Substance: CARBIDOPA\LEVODOPA
     Dosage: MD 5.9 ML, CD 2.6 ML/H, ED 1.5 ML, NIGHT CONTINUOUS DOSE 2.1 ML/H
     Route: 050
     Dates: end: 20220319

REACTIONS (3)
  - Disease complication [Fatal]
  - COVID-19 [Fatal]
  - Condition aggravated [Fatal]
